FAERS Safety Report 10712326 (Version 2)
Quarter: 2015Q1

REPORT INFORMATION
  Report Type: Spontaneous
  Country: JP (occurrence: JP)
  Receive Date: 20150115
  Receipt Date: 20150310
  Transmission Date: 20150721
  Serious: Yes (Hospitalization)
  Sender: FDA-Public Use
  Company Number: JP-ROCHE-1521174

PATIENT
  Age: 62 Year
  Sex: Female

DRUGS (1)
  1. CLEACTOR [Suspect]
     Active Substance: MONTEPLASE
     Indication: PRODUCT USED FOR UNKNOWN INDICATION
     Route: 065

REACTIONS (2)
  - Macular hole [Recovered/Resolved]
  - Off label use [Unknown]
